FAERS Safety Report 25953584 (Version 1)
Quarter: 2025Q4

REPORT INFORMATION
  Report Type: Spontaneous
  Country: EU (occurrence: EU)
  Receive Date: 20251023
  Receipt Date: 20251023
  Transmission Date: 20260119
  Serious: Yes (Death, Hospitalization, Other)
  Sender: PFIZER
  Company Number: EU-PFIZER INC-PV202500124499

PATIENT
  Age: 81 Year
  Sex: Male

DRUGS (1)
  1. CRIZOTINIB [Suspect]
     Active Substance: CRIZOTINIB
     Indication: Inflammatory myofibroblastic tumour
     Dosage: 250 MG, 2X/DAY
     Dates: start: 20250502, end: 202507

REACTIONS (5)
  - Death [Fatal]
  - Inflammatory myofibroblastic tumour [Unknown]
  - Malignant neoplasm progression [Unknown]
  - Gastrointestinal disorder [Unknown]
  - Oedema [Unknown]

NARRATIVE: CASE EVENT DATE: 20250101
